FAERS Safety Report 9107452 (Version 1)
Quarter: 2013Q1

REPORT INFORMATION
  Report Type: Spontaneous
  Country: JP (occurrence: JP)
  Receive Date: 20130221
  Receipt Date: 20130221
  Transmission Date: 20140127
  Serious: Yes (Death, Life-Threatening, Hospitalization)
  Sender: FDA-Public Use
  Company Number: JP-AMGEN-JPNSP2013010982

PATIENT
  Age: 55 Year
  Sex: Male
  Weight: 58 kg

DRUGS (9)
  1. VECTIBIX [Suspect]
     Indication: COLON CANCER
     Dosage: 400 MG, Q2WK
     Route: 041
     Dates: start: 20110509, end: 20111028
  2. TS-1 [Suspect]
     Indication: COLON CANCER
     Dosage: 50 MG, BID
     Route: 048
     Dates: start: 20111003, end: 20111012
  3. CAMPTO [Suspect]
     Indication: COLON CANCER
     Dosage: 100 MG, QD
     Route: 041
     Dates: start: 20111003, end: 20111003
  4. CELECOX [Suspect]
     Indication: COLON CANCER
     Dosage: 100 MG, BID
     Route: 048
     Dates: start: 20111026, end: 20111110
  5. 5 FU [Concomitant]
     Indication: COLON CANCER
     Dosage: UNK
     Route: 042
     Dates: start: 20110509, end: 20110922
  6. CALCIUM LEVOFOLINATE [Concomitant]
     Indication: COLON CANCER
     Dosage: 125 MG, UNK
     Route: 041
     Dates: start: 20110509, end: 20110922
  7. ELPLAT [Concomitant]
     Indication: COLON CANCER
     Dosage: 100 MG, UNK
     Route: 041
     Dates: start: 20110509, end: 20110922
  8. REBAMIPIDE [Concomitant]
     Indication: GASTRITIS
     Dosage: 100 MG, UNK
     Route: 048
     Dates: start: 20111027, end: 20111206
  9. STANZOME [Concomitant]
     Indication: GASTROOESOPHAGEAL REFLUX DISEASE
     Dosage: 15 MG, UNK
     Route: 048
     Dates: start: 20110509, end: 20111206

REACTIONS (6)
  - Tetany [Recovered/Resolved]
  - Hypocalcaemia [Recovered/Resolved]
  - Metastases to lung [Fatal]
  - Pneumonia staphylococcal [Fatal]
  - Dermatitis acneiform [Recovering/Resolving]
  - Paronychia [Recovering/Resolving]
